FAERS Safety Report 7022718-7 (Version None)
Quarter: 2010Q3

REPORT INFORMATION
  Report Type: 
  Country: None (occurrence: None)
  Receive Date: 20100930
  Receipt Date: 20100924
  Transmission Date: 20110219
  Serious: Yes (Hospitalization)
  Sender: FDA-Public Use
  Company Number: A0836476A

PATIENT
  Age: 85 Year
  Sex: Female
  Weight: 59.1 kg

DRUGS (1)
  1. AVANDIA [Suspect]
     Dosage: 4MG PER DAY
     Route: 048
     Dates: start: 20061104, end: 20081201

REACTIONS (5)
  - ATRIAL FIBRILLATION [None]
  - ATRIOVENTRICULAR BLOCK COMPLETE [None]
  - CEREBRAL HAEMORRHAGE [None]
  - LACUNAR INFARCTION [None]
  - MYOCARDIAL INFARCTION [None]
